FAERS Safety Report 5071221-2 (Version None)
Quarter: 2006Q3

REPORT INFORMATION
  Report Type: 
  Country: None (occurrence: None)
  Receive Date: 20060802
  Receipt Date: 20060802
  Transmission Date: 20061208
  Serious: Yes (Hospitalization)
  Sender: FDA-Public Use
  Company Number: None

PATIENT
  Age: 62 Year
  Sex: Male
  Weight: 76.6579 kg

DRUGS (5)
  1. ISONIAZID [Suspect]
     Indication: CONJUNCTIVITIS
     Dosage: 300MG  Q24H  PO
     Route: 048
     Dates: start: 20060610, end: 20060710
  2. ISONIAZID [Suspect]
     Indication: PEMPHIGUS
     Dosage: 300MG  Q24H  PO
     Route: 048
     Dates: start: 20060610, end: 20060710
  3. ISONIAZID [Suspect]
     Indication: PHARYNGITIS
     Dosage: 300MG  Q24H  PO
     Route: 048
     Dates: start: 20060610, end: 20060710
  4. ISONIAZID [Suspect]
     Indication: PYREXIA
     Dosage: 300MG  Q24H  PO
     Route: 048
     Dates: start: 20060610, end: 20060710
  5. ISONIAZID [Suspect]
     Indication: STOMATITIS
     Dosage: 300MG  Q24H  PO
     Route: 048
     Dates: start: 20060610, end: 20060710

REACTIONS (4)
  - CONJUNCTIVAL HYPERAEMIA [None]
  - PHARYNGITIS [None]
  - PYREXIA [None]
  - STOMATITIS [None]
